FAERS Safety Report 8043427-1 (Version None)
Quarter: 2012Q1

REPORT INFORMATION
  Report Type: 
  Country: None (occurrence: None)
  Receive Date: 20120112
  Receipt Date: 20120106
  Transmission Date: 20120608
  Serious: Yes (Hospitalization)
  Sender: FDA-Public Use
  Company Number: PHHY2011IT112646

PATIENT

DRUGS (9)
  1. AMOXICILLIN AND CLAVULANATE POTASSIUM [Suspect]
     Dosage: 2 DF, UNK
     Route: 048
     Dates: start: 20111202, end: 20111205
  2. ENALAPRIL MALEATE [Suspect]
     Dosage: 1 DF, UNK
     Route: 048
     Dates: start: 20070101, end: 20111205
  3. GLICLAZIDE [Concomitant]
     Dosage: 30 MG, UNK
  4. NIMESULIDE SANDOZ [Suspect]
     Indication: PAIN IN EXTREMITY
     Dosage: 1 DF, UNK
     Route: 048
     Dates: start: 20111202, end: 20111205
  5. MAGNESIUM HYDROXIDE TAB [Concomitant]
  6. FUROSEMIDE [Concomitant]
     Dosage: 25 MG, UNK
  7. CARVEDILOL [Concomitant]
     Dosage: 6.25 MG, UNK
  8. METFORMIN HCL [Concomitant]
     Dosage: 500 MG, UNK
  9. OMEPRAZOLE [Concomitant]
     Dosage: 10 MG, UNK

REACTIONS (1)
  - RENAL FAILURE ACUTE [None]
